FAERS Safety Report 21155194 (Version 1)
Quarter: 2022Q3

REPORT INFORMATION
  Report Type: Spontaneous
  Country: US (occurrence: None)
  Receive Date: 20220731
  Receipt Date: 20220731
  Transmission Date: 20221027
  Serious: No
  Sender: FDA-Public Use
  Company Number: None

PATIENT
  Age: 45 Year
  Sex: Female
  Weight: 72.1 kg

DRUGS (9)
  1. PAXLOVID [Suspect]
     Active Substance: NIRMATRELVIR\RITONAVIR
     Indication: COVID-19
     Dosage: FREQUENCY : TWICE A DAY;?
     Route: 048
     Dates: start: 20220706, end: 20220710
  2. calcium carbonate/vitamin D3 (CALCIUM 600 + D PO) [Concomitant]
  3. CETIRIZINE [Concomitant]
  4. DULoxetine (CYMBALTA) [Concomitant]
  5. FLUoxetine (PROzac) [Concomitant]
  6. FLUTICASONE PROPIONATE (FLONASE ALLERGY RELIEF NA) [Concomitant]
  7. MAGNESIUM OXIDE [Concomitant]
  8. Multivitamins with Fluoride (MULTI-VITAMIN PO) [Concomitant]
  9. vitamin B complex (B COMPLEX 1 (WITH FOLIC ACID)) w/ folic acid [Concomitant]

REACTIONS (3)
  - Rebound effect [None]
  - COVID-19 [None]
  - SARS-CoV-2 test positive [None]

NARRATIVE: CASE EVENT DATE: 20220715
